FAERS Safety Report 11213816 (Version 1)
Quarter: 2015Q2

REPORT INFORMATION
  Report Type: Report from Study
  Country: DE (occurrence: DE)
  Receive Date: 20150623
  Receipt Date: 20150623
  Transmission Date: 20150821
  Serious: Yes (Life-Threatening, Hospitalization)
  Sender: FDA-Public Use
  Company Number: DE-TEVA-572098USA

PATIENT
  Age: 73 Year
  Sex: Male
  Weight: 94.89 kg

DRUGS (11)
  1. RAMIPRIL PLUS [Suspect]
     Active Substance: RAMIPRIL
     Indication: HYPERTENSION
     Dosage: 5/25 MG
     Route: 065
     Dates: start: 2006
  2. RITUXIMAB [Suspect]
     Active Substance: RITUXIMAB
     Indication: MANTLE CELL LYMPHOMA
     Route: 065
     Dates: start: 20110816, end: 20110816
  3. PARACETAMOL [Concomitant]
     Active Substance: ACETAMINOPHEN
     Dates: start: 20110816
  4. CETIRIZINE [Concomitant]
     Active Substance: CETIRIZINE HYDROCHLORIDE
     Dates: start: 20110816, end: 20110816
  5. GRANISETRON [Concomitant]
     Active Substance: GRANISETRON
     Dates: start: 20110817, end: 20110818
  6. PANTOPRAZOLE [Concomitant]
     Active Substance: PANTOPRAZOLE SODIUM
     Dates: start: 20110817, end: 20110818
  7. BENDAMUSTINE [Suspect]
     Active Substance: BENDAMUSTINE
     Indication: MANTLE CELL LYMPHOMA
     Route: 065
     Dates: start: 20110817, end: 20110818
  8. PHENYTOIN. [Concomitant]
     Active Substance: PHENYTOIN
     Route: 065
     Dates: start: 1980
  9. TEMSIROLIMUS [Suspect]
     Active Substance: TEMSIROLIMUS
     Indication: MANTLE CELL LYMPHOMA
     Route: 065
     Dates: start: 20110818, end: 20110831
  10. ALLOPURINOL. [Concomitant]
     Active Substance: ALLOPURINOL
     Dates: start: 20110816, end: 20110816
  11. DIMETINDENE [Concomitant]
     Active Substance: DIMETHINDENE
     Dates: start: 20110818, end: 20110831

REACTIONS (1)
  - Angioedema [Recovered/Resolved]

NARRATIVE: CASE EVENT DATE: 20110909
